FAERS Safety Report 5532322-5 (Version None)
Quarter: 2007Q4

REPORT INFORMATION
  Report Type: 
  Country: None (occurrence: None)
  Receive Date: 20071203
  Receipt Date: 20071122
  Transmission Date: 20080405
  Serious: Yes (Hospitalization)
  Sender: FDA-Public Use
  Company Number: FR-ELI_LILLY_AND_COMPANY-FR200711003812

PATIENT
  Age: 50 Year
  Sex: Female

DRUGS (6)
  1. CYMBALTA [Suspect]
     Indication: DEPRESSION
     Dosage: UNK, UNK
     Route: 048
     Dates: start: 20071024, end: 20071101
  2. LEXOMIL [Concomitant]
     Indication: BIPOLAR DISORDER
     Route: 048
     Dates: start: 19870101
  3. LYSANXIA [Concomitant]
     Indication: BIPOLAR DISORDER
     Route: 048
     Dates: start: 19870101
  4. NEBILOX [Concomitant]
     Route: 048
  5. ZOLPIDEM TARTRATE [Concomitant]
     Indication: INSOMNIA
     Route: 048
  6. DEPAKOTE [Concomitant]
     Indication: BIPOLAR DISORDER
     Route: 048

REACTIONS (2)
  - COMA [None]
  - SUICIDE ATTEMPT [None]
